FAERS Safety Report 11882063 (Version 1)
Quarter: 2015Q4

REPORT INFORMATION
  Report Type: Spontaneous
  Country: US (occurrence: None)
  Receive Date: 20151230
  Receipt Date: 20151230
  Transmission Date: 20160305
  Serious: No
  Sender: FDA-Public Use
  Company Number: None

PATIENT
  Age: 62 Year
  Sex: Male
  Weight: 110.22 kg

DRUGS (1)
  1. LEXISCAN [Suspect]
     Active Substance: REGADENOSON
     Indication: SCAN MYOCARDIAL PERFUSION
     Route: 042
     Dates: start: 20151228

REACTIONS (5)
  - Nausea [None]
  - Micturition urgency [None]
  - Hypertension [None]
  - Blood pressure diastolic decreased [None]
  - Seizure [None]

NARRATIVE: CASE EVENT DATE: 20151228
